FAERS Safety Report 22159750 (Version 1)
Quarter: 2023Q1

REPORT INFORMATION
  Report Type: Report from Study
  Country: AR (occurrence: AR)
  Receive Date: 20230331
  Receipt Date: 20230331
  Transmission Date: 20230418
  Serious: Yes (Death)
  Sender: FDA-Public Use
  Company Number: AR-TAKEDA-2023TUS010490

PATIENT
  Age: 74 Year
  Sex: Female

DRUGS (1)
  1. BRIGATINIB [Suspect]
     Active Substance: BRIGATINIB
     Indication: Lung neoplasm malignant
     Dosage: 120 MILLIGRAM, QD
     Route: 048
     Dates: start: 20220301, end: 202301

REACTIONS (2)
  - Adverse event [Fatal]
  - Gastric disorder [Unknown]

NARRATIVE: CASE EVENT DATE: 20230101
